FAERS Safety Report 10835942 (Version 1)
Quarter: 2015Q1

REPORT INFORMATION
  Report Type: Report from Study
  Country: US (occurrence: US)
  Receive Date: 20150219
  Receipt Date: 20150219
  Transmission Date: 20150721
  Serious: No
  Sender: FDA-Public Use
  Company Number: US-ABBVIE-14P-163-1205088-00

PATIENT
  Age: 53 Year
  Sex: Male

DRUGS (1)
  1. HUMIRA [Suspect]
     Active Substance: ADALIMUMAB
     Indication: PSORIASIS
     Dates: start: 201009, end: 201402

REACTIONS (6)
  - Local swelling [Recovering/Resolving]
  - Purulent discharge [Recovering/Resolving]
  - Neck pain [Recovering/Resolving]
  - Pruritus [Recovering/Resolving]
  - Arthropod bite [Recovering/Resolving]
  - Rash [Recovering/Resolving]

NARRATIVE: CASE EVENT DATE: 201402
